FAERS Safety Report 17449467 (Version 2)
Quarter: 2020Q1

REPORT INFORMATION
  Report Type: Spontaneous
  Country: US (occurrence: US)
  Receive Date: 20200224
  Receipt Date: 20200325
  Transmission Date: 20200409
  Serious: No
  Sender: FDA-Public Use
  Company Number: US-ALLERGAN-1948407US

PATIENT
  Sex: Female

DRUGS (2)
  1. BLOOD PRESSURE MEDICATION [Concomitant]
     Active Substance: UNSPECIFIED INGREDIENT
     Indication: HYPERTENSION
  2. OXYTROL [Suspect]
     Active Substance: OXYBUTYNIN
     Indication: URINARY INCONTINENCE
     Dosage: 2 DF, Q WEEK
     Route: 062
     Dates: start: 201810, end: 20191125

REACTIONS (4)
  - Administration site pain [Recovered/Resolved]
  - Administration site hypertrophy [Recovered/Resolved]
  - Administration site irritation [Recovered/Resolved with Sequelae]
  - Inappropriate schedule of product administration [Unknown]
